FAERS Safety Report 8762969 (Version 2)
Quarter: 2013Q1

REPORT INFORMATION
  Report Type: Spontaneous
  Country: US (occurrence: None)
  Receive Date: 20120824
  Receipt Date: 20120926
  Transmission Date: 20140127
  Serious: Yes (Hospitalization)
  Sender: FDA-Public Use
  Company Number: UTC-022202

PATIENT
  Age: 49 Year
  Sex: Male
  Weight: 72.72 kg

DRUGS (4)
  1. TYVASO (6 MICROGRAM, AEROSOL FOR INHALATION) (TREPROSTINIL SODIUM) [Suspect]
     Indication: PULMONARY ARTERIAL HYPERTENSION
     Route: 055
     Dates: start: 20120629
  2. ADCIRCA [Concomitant]
  3. COUMADIN [Concomitant]
  4. LETAIRIS [Concomitant]

REACTIONS (2)
  - Gastric haemorrhage [None]
  - Decreased appetite [None]
